FAERS Safety Report 8161991-9 (Version None)
Quarter: 2012Q1

REPORT INFORMATION
  Report Type: 
  Country: None (occurrence: None)
  Receive Date: 20120224
  Receipt Date: 20120214
  Transmission Date: 20120608
  Serious: Yes (Other)
  Sender: FDA-Public Use
  Company Number: US-PERRIGO-12US001279

PATIENT
  Age: 7 Month
  Sex: Male

DRUGS (11)
  1. IBUPROFEN [Concomitant]
     Indication: POOR QUALITY SLEEP
  2. ACETAMINOPHEN W/ CODEINE [Suspect]
     Indication: PSYCHOMOTOR HYPERACTIVITY
     Dosage: UNK
     Route: 065
  3. LORAZEPAM [Suspect]
     Indication: SEDATION
     Dosage: UNK
     Route: 065
  4. LORAZEPAM [Suspect]
     Indication: POOR QUALITY SLEEP
  5. FENTANYL [Suspect]
     Indication: SEDATION
     Dosage: UNK
     Route: 065
  6. MORPHINE [Suspect]
     Indication: POOR QUALITY SLEEP
  7. MORPHINE [Suspect]
     Indication: PSYCHOMOTOR HYPERACTIVITY
  8. LORAZEPAM [Suspect]
     Indication: PSYCHOMOTOR HYPERACTIVITY
  9. ACETAMINOPHEN W/ CODEINE [Suspect]
     Indication: POOR QUALITY SLEEP
  10. MORPHINE [Suspect]
     Indication: SEDATION
     Dosage: UNK
     Route: 065
  11. IBUPROFEN [Concomitant]
     Indication: PSYCHOMOTOR HYPERACTIVITY
     Dosage: UNK
     Route: 065

REACTIONS (3)
  - DELIRIUM [None]
  - PSYCHOMOTOR HYPERACTIVITY [None]
  - INSOMNIA [None]
